FAERS Safety Report 16275544 (Version 5)
Quarter: 2019Q2

REPORT INFORMATION
  Report Type: Report from Study
  Country: US (occurrence: US)
  Receive Date: 20190506
  Receipt Date: 20190614
  Transmission Date: 20190711
  Serious: Yes (Hospitalization)
  Sender: FDA-Public Use
  Company Number: US-ASTRAZENECA-2019SE41630

PATIENT
  Age: 818 Month
  Sex: Female
  Weight: 59 kg

DRUGS (11)
  1. VITAMIN D [Concomitant]
     Active Substance: VITAMIN D NOS
     Route: 065
  2. BENADRYL [Concomitant]
     Active Substance: DIPHENHYDRAMINE HYDROCHLORIDE
  3. ACEBUTOLOL [Concomitant]
     Active Substance: ACEBUTOLOL
     Route: 065
  4. ALLOPURINOL. [Concomitant]
     Active Substance: ALLOPURINOL
     Indication: GOUT
     Route: 065
  5. ZANTAC [Concomitant]
     Active Substance: RANITIDINE HYDROCHLORIDE
     Route: 065
  6. MELATONIN [Concomitant]
     Active Substance: MELATONIN
     Indication: SLEEP DISORDER
     Dosage: AT NIGHT
     Route: 065
  7. ACALABRUTINIB. [Suspect]
     Active Substance: ACALABRUTINIB
     Indication: MANTLE CELL LYMPHOMA
     Route: 048
     Dates: start: 201903
  8. NORVASC ANLODIPINE [Concomitant]
     Indication: BLOOD PRESSURE MEASUREMENT
     Route: 065
  9. COZAAR [Concomitant]
     Active Substance: LOSARTAN POTASSIUM
     Route: 065
  10. PREDNISONE. [Concomitant]
     Active Substance: PREDNISONE
  11. ACALABRUTINIB. [Suspect]
     Active Substance: ACALABRUTINIB
     Indication: MANTLE CELL LYMPHOMA
     Route: 048
     Dates: start: 20190306

REACTIONS (24)
  - Cough [Unknown]
  - Anxiety [Unknown]
  - Skin discolouration [Unknown]
  - Back injury [Unknown]
  - Insomnia [Unknown]
  - Discomfort [Unknown]
  - Contusion [Unknown]
  - Feeling abnormal [Unknown]
  - Malaise [Unknown]
  - Dyspnoea [Unknown]
  - Alopecia [Unknown]
  - Fatigue [Unknown]
  - Eye contusion [Not Recovered/Not Resolved]
  - Peripheral swelling [Unknown]
  - Therapeutic response unexpected [Unknown]
  - Blood sodium decreased [Not Recovered/Not Resolved]
  - Haemoglobin decreased [Unknown]
  - Heart rate decreased [Unknown]
  - Musculoskeletal pain [Unknown]
  - Dehydration [Unknown]
  - Sleep disorder [Unknown]
  - Back pain [Unknown]
  - Asthenia [Recovered/Resolved]
  - Off label use [Not Recovered/Not Resolved]

NARRATIVE: CASE EVENT DATE: 201903
